FAERS Safety Report 7634909-2 (Version None)
Quarter: 2011Q3

REPORT INFORMATION
  Report Type: 
  Country: None (occurrence: None)
  Receive Date: 20110726
  Receipt Date: 20110718
  Transmission Date: 20111222
  Serious: Yes (Other)
  Sender: FDA-Public Use
  Company Number: US-ASTRAZENECA-2009UW19099

PATIENT
  Age: 44 Year
  Sex: Female
  Weight: 88.5 kg

DRUGS (15)
  1. PRILOSEC [Concomitant]
     Dates: start: 20080501
  2. PAXIL CR [Concomitant]
     Indication: BIPOLAR DISORDER
     Dates: start: 20061218
  3. LITHIUM CARBONATE [Concomitant]
     Indication: AFFECTIVE DISORDER
     Route: 048
     Dates: start: 20050404
  4. HYDROXYZ HCL [Concomitant]
     Dates: start: 20080101
  5. SEROQUEL [Suspect]
     Route: 048
     Dates: start: 20050404, end: 20050531
  6. SEROQUEL [Suspect]
     Route: 048
     Dates: start: 20060328, end: 20080616
  7. PAXIL CR [Concomitant]
     Dates: start: 20030812
  8. SEROQUEL [Suspect]
     Dosage: 400MG TO 800 GM AT NIGHT
     Route: 048
     Dates: start: 20070221
  9. RISPERDAL [Concomitant]
     Dates: start: 20100101
  10. NEXIUM [Concomitant]
     Indication: GASTROOESOPHAGEAL REFLUX DISEASE
     Route: 048
     Dates: start: 20030812
  11. SEROQUEL [Suspect]
     Indication: SLEEP DISORDER
     Route: 048
     Dates: start: 20030812
  12. PAXIL CR [Concomitant]
     Indication: DEPRESSION
     Dates: start: 20061218
  13. GEODON [Concomitant]
     Dosage: 40 MG PO BID TO 80 MG PO BID
     Route: 048
     Dates: start: 20050531
  14. PAXIL CR [Concomitant]
     Dates: start: 20030812
  15. TRAZODONE HYDROCHLORIDE [Concomitant]
     Dosage: 50MG TO 100MG AT NIGHT
     Dates: start: 20070314

REACTIONS (6)
  - VISION BLURRED [None]
  - RASH [None]
  - DIABETIC EYE DISEASE [None]
  - TYPE 2 DIABETES MELLITUS [None]
  - BACK PAIN [None]
  - DIABETIC RETINOPATHY [None]
